FAERS Safety Report 18953012 (Version 1)
Quarter: 2021Q1

REPORT INFORMATION
  Report Type: Spontaneous
  Country: US (occurrence: US)
  Receive Date: 20210227
  Receipt Date: 20210227
  Transmission Date: 20210420
  Serious: No
  Sender: FDA-Public Use
  Company Number: None

PATIENT
  Sex: Female

DRUGS (6)
  1. TRAZODONE [Concomitant]
     Active Substance: TRAZODONE HYDROCHLORIDE
  2. GABAPENTIN. [Concomitant]
     Active Substance: GABAPENTIN
  3. RISPERIDONE. [Concomitant]
     Active Substance: RISPERIDONE
  4. INVEGA SUSTENNA [Suspect]
     Active Substance: PALIPERIDONE PALMITATE
     Indication: BIPOLAR I DISORDER
     Dosage: ?          OTHER FREQUENCY:EVERY 30 DAYS;?
     Route: 030
  5. DIVALPROEX [Concomitant]
     Active Substance: DIVALPROEX SODIUM
  6. MIRTAZAPINE. [Concomitant]
     Active Substance: MIRTAZAPINE

REACTIONS (4)
  - Product distribution issue [None]
  - Suicidal ideation [None]
  - Therapy interrupted [None]
  - Hallucination [None]
